FAERS Safety Report 26206306 (Version 1)
Quarter: 2025Q4

REPORT INFORMATION
  Report Type: Spontaneous
  Country: US (occurrence: US)
  Receive Date: 20251229
  Receipt Date: 20251229
  Transmission Date: 20260118
  Serious: Yes (Death, Hospitalization)
  Sender: TEVA
  Company Number: US-TEVA-VS-3406413

PATIENT
  Age: 52 Year
  Sex: Male

DRUGS (1)
  1. FLUCONAZOLE [Suspect]
     Active Substance: FLUCONAZOLE
     Indication: Disseminated cryptococcosis
     Dosage: RECEIVED MAINTENANCE DOSE
     Route: 065

REACTIONS (3)
  - Electrocardiogram QT prolonged [Fatal]
  - Cardiac arrest [Fatal]
  - Torsade de pointes [Fatal]
